FAERS Safety Report 6355959-2 (Version None)
Quarter: 2009Q3

REPORT INFORMATION
  Report Type: 
  Country: None (occurrence: None)
  Receive Date: 20090914
  Receipt Date: 20090914
  Transmission Date: 20100115
  Serious: No
  Sender: FDA-Public Use
  Company Number: None

PATIENT
  Sex: Male
  Weight: 97.5234 kg

DRUGS (1)
  1. AFRIN [Suspect]
     Indication: NASOPHARYNGITIS
     Dosage: 2 OR 3 SPRAYS EVERY 12 HOURS NASAL
     Route: 045
     Dates: start: 20090315, end: 20090317

REACTIONS (2)
  - ANOSMIA [None]
  - HYPOGEUSIA [None]
